FAERS Safety Report 7704784-6 (Version None)
Quarter: 2011Q3

REPORT INFORMATION
  Report Type: 
  Country: None (occurrence: None)
  Receive Date: 20110823
  Receipt Date: 20110818
  Transmission Date: 20111222
  Serious: Yes (Other)
  Sender: FDA-Public Use
  Company Number: US-PFIZER INC-2007035658

PATIENT
  Sex: Female

DRUGS (2)
  1. NEURONTIN [Suspect]
     Indication: MIGRAINE
  2. NEURONTIN [Suspect]
     Indication: SINUS HEADACHE
     Dosage: 300 MG, UNK
     Route: 048
     Dates: start: 20030703

REACTIONS (2)
  - AMNESIA [None]
  - CARDIAC FLUTTER [None]
